FAERS Safety Report 4578553-2 (Version None)
Quarter: 2005Q1

REPORT INFORMATION
  Report Type: 
  Country: None (occurrence: None)
  Receive Date: 20050211
  Receipt Date: 20050204
  Transmission Date: 20050727
  Serious: Yes (Other)
  Sender: FDA-Public Use
  Company Number: 200510722GDDC

PATIENT
  Age: 61 Year
  Sex: Female

DRUGS (1)
  1. NICODERM CQ [Suspect]
     Indication: SMOKING CESSATION THERAPY
     Dosage: 21MG PER DAY
     Route: 062

REACTIONS (4)
  - DRUG INEFFECTIVE [None]
  - INTENTIONAL MISUSE [None]
  - LUNG DISORDER [None]
  - NICOTINE DEPENDENCE [None]
